FAERS Safety Report 11334749 (Version 3)
Quarter: 2015Q4

REPORT INFORMATION
  Report Type: Spontaneous
  Country: JP (occurrence: None)
  Receive Date: 20150731
  Receipt Date: 20151012
  Transmission Date: 20160304
  Serious: Yes (Death, Hospitalization, Other)
  Sender: FDA-Public Use
  Company Number: ADR-2015-01435

PATIENT
  Age: 78 Year
  Sex: Male
  Weight: 57 kg

DRUGS (1)
  1. GABALON INTRATHECAL 0.2% [Suspect]
     Active Substance: BACLOFEN
     Indication: BRAIN STEM INFARCTION
     Dosage: 345 MCG/DAY

REACTIONS (1)
  - Death [None]
